FAERS Safety Report 6053209-8 (Version None)
Quarter: 2009Q1

REPORT INFORMATION
  Report Type: 
  Country: None (occurrence: None)
  Receive Date: 20090123
  Receipt Date: 20090105
  Transmission Date: 20090719
  Serious: Yes (Death)
  Sender: FDA-Public Use
  Company Number: 2009S1000130

PATIENT
  Sex: Male

DRUGS (7)
  1. MELPHALAN (MELPHALAN) [Suspect]
     Indication: BONE MARROW CONDITIONING REGIMEN
     Dosage: 140 MG/M**2
     Dates: start: 19870101
  2. METHOTREXATE [Suspect]
     Indication: PROPHYLAXIS
     Dosage: 15 MG/M**2; DAILY, 10 MG/M**2; DAILY
     Dates: start: 19870101
  3. METHOTREXATE [Suspect]
     Indication: PROPHYLAXIS
     Dosage: 15 MG/M**2; DAILY, 10 MG/M**2; DAILY
     Dates: start: 19870101
  4. METHYLPREDNISOLONE 16MG TAB [Suspect]
     Indication: GRAFT VERSUS HOST DISEASE
     Dates: start: 19870101
  5. PREDNISONE TAB [Suspect]
     Indication: GRAFT VERSUS HOST DISEASE
     Dosage: ORAL
     Route: 048
     Dates: start: 19870101
  6. AZATHIOPRINE [Suspect]
     Indication: GRAFT VERSUS HOST DISEASE
     Dates: start: 19870101
  7. THALIDOMIDE [Suspect]
     Indication: GRAFT VERSUS HOST DISEASE
     Dates: start: 19870101

REACTIONS (9)
  - ACUTE GRAFT VERSUS HOST DISEASE IN INTESTINE [None]
  - ACUTE GRAFT VERSUS HOST DISEASE IN LIVER [None]
  - ACUTE GRAFT VERSUS HOST DISEASE IN SKIN [None]
  - GRAFT VERSUS HOST DISEASE [None]
  - HYPERKERATOSIS [None]
  - METASTASES TO LYMPH NODES [None]
  - METASTASIS [None]
  - RECURRENT CANCER [None]
  - SQUAMOUS CELL CARCINOMA OF SKIN [None]
